FAERS Safety Report 8123650-8 (Version None)
Quarter: 2012Q1

REPORT INFORMATION
  Report Type: 
  Country: None (occurrence: None)
  Receive Date: 20120208
  Receipt Date: 20120206
  Transmission Date: 20120608
  Serious: Yes (Death, Other)
  Sender: FDA-Public Use
  Company Number: PHHY2012FR010028

PATIENT

DRUGS (1)
  1. AFINITOR [Suspect]
     Indication: RENAL CELL CARCINOMA
     Dosage: UNK UKN, UNK
     Route: 048

REACTIONS (2)
  - DEATH [None]
  - THROMBOCYTOPENIA [None]
